FAERS Safety Report 23581828 (Version 1)
Quarter: 2024Q1

REPORT INFORMATION
  Report Type: Spontaneous
  Country: US (occurrence: US)
  Receive Date: 20240229
  Receipt Date: 20240229
  Transmission Date: 20240409
  Serious: No
  Sender: FDA-Public Use
  Company Number: US-PRIMUS-2023-US-012173

PATIENT
  Age: 61 Year
  Sex: Male
  Weight: 92.99 kg

DRUGS (2)
  1. SERNIVO [Suspect]
     Active Substance: BETAMETHASONE DIPROPIONATE
     Indication: Eczema
     Dosage: APPLY TOPICALLY TWICE DAILY
     Route: 061
     Dates: start: 20230507, end: 20230509
  2. PREDNISONE [Concomitant]
     Active Substance: PREDNISONE
     Route: 048
     Dates: start: 20230507

REACTIONS (2)
  - Application site bruise [Not Recovered/Not Resolved]
  - Off label use [Recovered/Resolved]

NARRATIVE: CASE EVENT DATE: 20230507
